FAERS Safety Report 18129974 (Version 1)
Quarter: 2020Q3

REPORT INFORMATION
  Report Type: Spontaneous
  Country: US (occurrence: US)
  Receive Date: 20200810
  Receipt Date: 20200810
  Transmission Date: 20201103
  Serious: No
  Sender: FDA-Public Use
  Company Number: US-PERRIGO-20US008812

PATIENT
  Sex: Male
  Weight: 81.63 kg

DRUGS (2)
  1. LORATADINE. [Suspect]
     Active Substance: LORATADINE
     Indication: PRURITUS
     Dosage: UNKNOWN, UNKNOWN
     Route: 048
     Dates: start: 2020, end: 2020
  2. LORATADINE. [Suspect]
     Active Substance: LORATADINE
     Indication: SWELLING

REACTIONS (1)
  - Drug ineffective for unapproved indication [Not Recovered/Not Resolved]

NARRATIVE: CASE EVENT DATE: 2020
